FAERS Safety Report 8564619-9 (Version None)
Quarter: 2012Q3

REPORT INFORMATION
  Report Type: 
  Country: None (occurrence: None)
  Receive Date: 20120803
  Receipt Date: 20120727
  Transmission Date: 20120928
  Serious: Yes (Hospitalization)
  Sender: FDA-Public Use
  Company Number: JP-009507513-1207JPN012600

PATIENT

DRUGS (11)
  1. PEG-INTRON [Suspect]
     Indication: HEPATITIS C
     Dosage: 1.5G/KG/WEEK
     Route: 058
     Dates: start: 20120516, end: 20120522
  2. REBETOL [Suspect]
     Indication: HEPATITIS C
     Route: 048
     Dates: start: 20120516, end: 20120528
  3. TELAVIC [Suspect]
     Indication: HEPATITIS C
     Route: 048
     Dates: start: 20120516, end: 20120523
  4. AMLODIPINE BESYLATE [Concomitant]
     Indication: HYPERTENSION
     Route: 048
  5. ASPIRIN [Concomitant]
     Indication: CEREBRAL INFARCTION
     Route: 048
  6. PEG-INTRON [Suspect]
     Dosage: 0.8G/KG/WEEK
     Route: 058
     Dates: start: 20120523
  7. TELAVIC [Suspect]
     Route: 048
     Dates: start: 20120524
  8. BLOPRESS [Concomitant]
     Indication: HYPERTENSION
     Route: 048
  9. REBETOL [Suspect]
     Route: 048
     Dates: start: 20120529
  10. URSO 250 [Concomitant]
     Indication: HEPATITIS C
     Route: 048
     Dates: end: 20120606
  11. NIZATIDINE [Concomitant]
     Indication: PROPHYLAXIS
     Route: 048

REACTIONS (2)
  - RENAL DISORDER [None]
  - HYPERURICAEMIA [None]
